FAERS Safety Report 8942359 (Version 1)
Quarter: 2012Q4

REPORT INFORMATION
  Report Type: Spontaneous
  Country: US (occurrence: None)
  Receive Date: 20121121
  Receipt Date: 20121121
  Transmission Date: 20130627
  Serious: Yes (Disabling)
  Sender: FDA-Public Use
  Company Number: DKLU1086440

PATIENT
  Age: 55 Year
  Sex: Female

DRUGS (6)
  1. ONFI (CLOBAZAM) (CLOBAZAM) (10 MG, TABLET) [Suspect]
     Indication: PRODUCT USED FOR UNKNOWN INDICATION
     Dates: start: 201209
  2. ONFI (CLOBAZAM) (CLOBAZAM) (10 MG, TABLET) [Suspect]
     Indication: PRODUCT USED FOR UNKNOWN INDICATION
  3. ONFI (CLOBAZAM) (CLOBAZAM) (10 MG, TABLET) [Suspect]
     Indication: PRODUCT USED FOR UNKNOWN INDICATION
  4. FELBATOL (FELBAMATE) [Concomitant]
  5. TOPAMAX (TOPIRAMATE) [Concomitant]
  6. DILANTIN (PHENYTOIN) [Concomitant]

REACTIONS (2)
  - Hypoaesthesia [None]
  - Dysstasia [None]
